FAERS Safety Report 5732897-7 (Version None)
Quarter: 2008Q2

REPORT INFORMATION
  Report Type: 
  Country: None (occurrence: None)
  Receive Date: 20080509
  Receipt Date: 20080219
  Transmission Date: 20081010
  Serious: No
  Sender: FDA-Public Use
  Company Number: A0710539A

PATIENT
  Sex: Male

DRUGS (1)
  1. COREG CR [Suspect]
     Route: 048
     Dates: start: 20080128, end: 20080131

REACTIONS (1)
  - DYSPNOEA [None]
